FAERS Safety Report 25472766 (Version 2)
Quarter: 2025Q3

REPORT INFORMATION
  Report Type: Spontaneous
  Country: US (occurrence: US)
  Receive Date: 20250624
  Receipt Date: 20250811
  Transmission Date: 20251020
  Serious: Yes (Hospitalization)
  Sender: MYLAN
  Company Number: US-MYLANLABS-2025M1051936

PATIENT
  Age: 57 Year
  Sex: Female
  Weight: 88.2 kg

DRUGS (24)
  1. AMIODARONE HYDROCHLORIDE [Interacting]
     Active Substance: AMIODARONE HYDROCHLORIDE
     Indication: Atrial fibrillation
  2. AMIODARONE HYDROCHLORIDE [Interacting]
     Active Substance: AMIODARONE HYDROCHLORIDE
     Route: 042
  3. AMIODARONE HYDROCHLORIDE [Interacting]
     Active Substance: AMIODARONE HYDROCHLORIDE
     Route: 042
  4. AMIODARONE HYDROCHLORIDE [Interacting]
     Active Substance: AMIODARONE HYDROCHLORIDE
  5. CALCITONIN SALMON [Suspect]
     Active Substance: CALCITONIN SALMON
     Indication: Hypercalcaemia
     Dosage: 4 INTERNATIONAL UNIT/KILOGRAM, BID, EVERY 12H FOR A TOTAL OF 48H
  6. CALCITONIN SALMON [Suspect]
     Active Substance: CALCITONIN SALMON
     Dosage: 4 INTERNATIONAL UNIT/KILOGRAM, BID, EVERY 12H FOR A TOTAL OF 48H
     Route: 058
  7. CALCITONIN SALMON [Suspect]
     Active Substance: CALCITONIN SALMON
     Dosage: 4 INTERNATIONAL UNIT/KILOGRAM, BID, EVERY 12H FOR A TOTAL OF 48H
     Route: 058
  8. CALCITONIN SALMON [Suspect]
     Active Substance: CALCITONIN SALMON
     Dosage: 4 INTERNATIONAL UNIT/KILOGRAM, BID, EVERY 12H FOR A TOTAL OF 48H
  9. CINACALCET [Suspect]
     Active Substance: CINACALCET
     Indication: Hypercalcaemia
     Dosage: 30 MILLIGRAM, BID
  10. CINACALCET [Suspect]
     Active Substance: CINACALCET
     Dosage: 30 MILLIGRAM, BID
  11. CINACALCET [Suspect]
     Active Substance: CINACALCET
     Dosage: 30 MILLIGRAM, BID
     Route: 048
  12. CINACALCET [Suspect]
     Active Substance: CINACALCET
     Dosage: 30 MILLIGRAM, BID
     Route: 048
  13. CINACALCET [Suspect]
     Active Substance: CINACALCET
     Dosage: 60 MILLIGRAM, BID
  14. CINACALCET [Suspect]
     Active Substance: CINACALCET
     Dosage: 60 MILLIGRAM, BID
  15. CINACALCET [Suspect]
     Active Substance: CINACALCET
     Dosage: 60 MILLIGRAM, BID
     Route: 048
  16. CINACALCET [Suspect]
     Active Substance: CINACALCET
     Dosage: 60 MILLIGRAM, BID
     Route: 048
  17. SIMVASTATIN [Interacting]
     Active Substance: SIMVASTATIN
     Indication: Hyperlipidaemia
     Dosage: 80 MILLIGRAM, HS
  18. SIMVASTATIN [Interacting]
     Active Substance: SIMVASTATIN
     Dosage: 80 MILLIGRAM, HS
     Route: 048
  19. SIMVASTATIN [Interacting]
     Active Substance: SIMVASTATIN
     Dosage: 80 MILLIGRAM, HS
     Route: 048
  20. SIMVASTATIN [Interacting]
     Active Substance: SIMVASTATIN
     Dosage: 80 MILLIGRAM, HS
  21. DENOSUMAB [Concomitant]
     Active Substance: DENOSUMAB
     Indication: Hypercalcaemia
  22. DENOSUMAB [Concomitant]
     Active Substance: DENOSUMAB
     Route: 058
  23. DENOSUMAB [Concomitant]
     Active Substance: DENOSUMAB
     Route: 058
  24. DENOSUMAB [Concomitant]
     Active Substance: DENOSUMAB

REACTIONS (4)
  - Rhabdomyolysis [Recovered/Resolved]
  - Drug interaction [Recovering/Resolving]
  - Hypercalcaemia [Recovered/Resolved]
  - Drug ineffective [Unknown]
